FAERS Safety Report 19849995 (Version 1)
Quarter: 2021Q3

REPORT INFORMATION
  Report Type: Spontaneous
  Country: IN (occurrence: IN)
  Receive Date: 20210918
  Receipt Date: 20210918
  Transmission Date: 20211014
  Serious: Yes (Hospitalization, Other)
  Sender: FDA-Public Use
  Company Number: IN-MSNLABS-2021MSNLIT00383

PATIENT

DRUGS (1)
  1. PREGABALIN. [Suspect]
     Active Substance: PREGABALIN
     Indication: PRODUCT USED FOR UNKNOWN INDICATION
     Dosage: 15 TABLETS AT 51 MG/KG
     Route: 048

REACTIONS (8)
  - Accidental exposure to product [Recovered/Resolved]
  - Agitation [Recovered/Resolved]
  - Abdominal pain [Recovered/Resolved]
  - Aggression [Recovered/Resolved]
  - Vomiting [Recovered/Resolved]
  - Nausea [Recovered/Resolved]
  - Somnolence [Recovered/Resolved]
  - Encephalopathy [Recovered/Resolved]
